FAERS Safety Report 8557731-1 (Version None)
Quarter: 2012Q2

REPORT INFORMATION
  Report Type: 
  Country: None (occurrence: None)
  Receive Date: 20120418
  Receipt Date: 20080617
  Transmission Date: 20120825
  Serious: Yes (Other)
  Sender: FDA-Public Use
  Company Number: PHEH2008US05460

PATIENT
  Age: 45 Year
  Sex: Female

DRUGS (2)
  1. DIOVAN HCT [Suspect]
     Indication: BLOOD PRESSURE ABNORMAL
     Dosage: 160MG VAL/25MG HCT, UNK
  2. HERBAL EXTRACTS NOS (NO INGREDIENTS/SUBSTANCES) [Concomitant]

REACTIONS (1)
  - ANGIOEDEMA [None]
